FAERS Safety Report 5622408-9 (Version None)
Quarter: 2008Q1

REPORT INFORMATION
  Report Type: 
  Country: None (occurrence: None)
  Receive Date: 20080211
  Receipt Date: 20080130
  Transmission Date: 20080703
  Serious: Yes (Other)
  Sender: FDA-Public Use
  Company Number: US-PFIZER INC-2008009526

PATIENT
  Age: 41 Year
  Sex: Female

DRUGS (6)
  1. CHANTIX [Suspect]
     Indication: SMOKING CESSATION THERAPY
  2. CHANTIX [Suspect]
  3. CHANTIX [Suspect]
     Dates: start: 20071023, end: 20071203
  4. PRILOSEC [Concomitant]
  5. PROZAC [Concomitant]
  6. DEMEROL [Concomitant]

REACTIONS (3)
  - OESOPHAGEAL CANDIDIASIS [None]
  - REFLUX OESOPHAGITIS [None]
  - UTERINE HAEMORRHAGE [None]
